FAERS Safety Report 8983671 (Version 1)
Quarter: 2012Q4

REPORT INFORMATION
  Report Type: 
  Country: AR (occurrence: AR)
  Receive Date: 20121224
  Receipt Date: 20121224
  Transmission Date: 20130627
  Serious: Yes (Death)
  Sender: FDA-Public Use
  Company Number: PHHY2012AR118711

PATIENT
  Age: 87 Year
  Sex: Male

DRUGS (1)
  1. EXELON PATCH [Suspect]
     Indication: COGNITIVE DISORDER
     Dosage: 9.5 mg/24 hours
     Route: 062

REACTIONS (1)
  - Death [Fatal]
